FAERS Safety Report 6469396-3 (Version None)
Quarter: 2009Q4

REPORT INFORMATION
  Report Type: 
  Country: None (occurrence: None)
  Receive Date: 20091203
  Receipt Date: 20080709
  Transmission Date: 20100525
  Serious: Yes (Hospitalization, Other)
  Sender: FDA-Public Use
  Company Number: NL-ELI_LILLY_AND_COMPANY-NL200706006264

PATIENT
  Sex: Male

DRUGS (10)
  1. CYMBALTA [Suspect]
     Indication: SOMATOFORM DISORDER
     Dosage: 60 MG, UNKNOWN
     Route: 065
     Dates: start: 20070601, end: 20070607
  2. LANOXIN [Concomitant]
     Dosage: 125 UG, UNK
     Route: 065
  3. FUROSEMIDE [Concomitant]
     Dosage: 20 MG, UNK
     Route: 065
  4. ACENOCOUMAROL [Concomitant]
     Dosage: 1 MG, DAILY (1/D)
     Route: 065
  5. FLECAINIDE ACETATE [Concomitant]
     Dosage: 50 MG, 2/D
     Route: 065
  6. SPIRIVA [Concomitant]
  7. SERETIDE [Concomitant]
     Dosage: UNK, UNKNOWN
     Route: 065
  8. SPIRONOLACTONE [Concomitant]
     Dosage: 12.5 MG, DAILY (1/D)
     Route: 065
  9. PREDNISOLONE [Concomitant]
     Dosage: 10 MG, DAILY (1/D)
     Route: 065
  10. DIAZEPAM [Concomitant]
     Dosage: 2.5 ML, DAILY (1/D)

REACTIONS (4)
  - CONVULSION [None]
  - DIZZINESS [None]
  - ORTHOSTATIC HYPOTENSION [None]
  - SUBDURAL HAEMATOMA [None]
